FAERS Safety Report 13503461 (Version 1)
Quarter: 2017Q2

REPORT INFORMATION
  Report Type: Spontaneous
  Country: US (occurrence: US)
  Receive Date: 20170502
  Receipt Date: 20170502
  Transmission Date: 20170830
  Serious: Yes (Life-Threatening, Hospitalization, Disabling)
  Sender: FDA-Public Use
  Company Number: None

PATIENT
  Age: 73 Year
  Sex: Female
  Weight: 104.33 kg

DRUGS (14)
  1. MELATONIN [Concomitant]
     Active Substance: MELATONIN
  2. ZETIA [Concomitant]
     Active Substance: EZETIMIBE
  3. SYSTANE (HYPROMELLOSE 2910 (4000 MPA.S)) [Concomitant]
     Active Substance: HYPROMELLOSE 2910 (4000 MPA.S)
  4. LEVOTHYROXINE. [Suspect]
     Active Substance: LEVOTHYROXINE
     Indication: THYROID HORMONES DECREASED
     Route: 048
     Dates: start: 2006, end: 20160402
  5. HYDROCHLOROTHIAZIDE. [Concomitant]
     Active Substance: HYDROCHLOROTHIAZIDE
  6. VITAMIN 50+ [Concomitant]
  7. ASPIRIN. [Concomitant]
     Active Substance: ASPIRIN
  8. ADALAT [Concomitant]
     Active Substance: NIFEDIPINE
  9. FUNGI NAIL [Concomitant]
  10. ADVIL [Concomitant]
     Active Substance: IBUPROFEN
  11. BIOTIN [Concomitant]
     Active Substance: BIOTIN
  12. ASPERCREME W/LIDOCAINE [Concomitant]
  13. LIPO-FLAVONOID-RING RELIEF [Concomitant]
  14. THERMACARE HEAT WRAPS [Concomitant]

REACTIONS (12)
  - Muscle spasms [None]
  - Pruritus [None]
  - Seizure [None]
  - Incontinence [None]
  - Hyperhidrosis [None]
  - Alopecia [None]
  - Nervousness [None]
  - Onychomycosis [None]
  - Heart rate irregular [None]
  - Drug ineffective [None]
  - Pain [None]
  - Joint lock [None]

NARRATIVE: CASE EVENT DATE: 2010
